FAERS Safety Report 9140928 (Version 1)
Quarter: 2013Q1

REPORT INFORMATION
  Report Type: Spontaneous
  Country: US (occurrence: US)
  Receive Date: 20130305
  Receipt Date: 20130305
  Transmission Date: 20140127
  Serious: Yes (Hospitalization, Other)
  Sender: FDA-Public Use
  Company Number: US-TEVA-389640USA

PATIENT
  Age: 36 Year
  Sex: Female

DRUGS (6)
  1. VENLAFAXINE [Suspect]
     Dosage: 300 MILLIGRAM DAILY;
     Dates: start: 2009
  2. QUETIAPINE FUMARATE [Concomitant]
     Indication: BIPOLAR DISORDER
     Dosage: 2400 MILLIGRAM DAILY;
     Dates: start: 2009
  3. QUETIAPINE FUMARATE [Concomitant]
     Indication: PERSONALITY DISORDER
  4. CLONAZEPAM [Concomitant]
     Dosage: 3 MILLIGRAM DAILY;
  5. MIRTAZAPINE [Concomitant]
     Indication: BIPOLAR DISORDER
     Dosage: 30 MILLIGRAM DAILY;
  6. MIRTAZAPINE [Concomitant]
     Indication: PERSONALITY DISORDER

REACTIONS (3)
  - Road traffic accident [Unknown]
  - Ankle fracture [Unknown]
  - Surgery [Unknown]
